FAERS Safety Report 8780424 (Version 1)
Quarter: 2012Q4

REPORT INFORMATION
  Report Type: Spontaneous
  Country: GB (occurrence: None)
  Receive Date: 20120830
  Receipt Date: 20120830
  Transmission Date: 20130627
  Serious: Yes (Hospitalization)
  Sender: FDA-Public Use
  Company Number: 2012AP002536

PATIENT
  Age: 1 Hour
  Sex: Male

DRUGS (9)
  1. CITALOPRAM (CITALOPRAM) [Suspect]
     Indication: DEPRESSION
     Route: 064
     Dates: start: 20111004
  2. OMEPRAZOLE (OMEPRAZOLE) [Suspect]
     Indication: DYSPEPSIA
     Route: 064
     Dates: start: 20080919
  3. SEROQUEL [Suspect]
     Indication: ANXIETY
     Route: 064
     Dates: start: 20110323, end: 20110910
  4. SEROQUEL [Suspect]
     Indication: DEPRESSION
     Route: 064
     Dates: start: 20110323, end: 20110910
  5. CHLORPROMAZINE HYDROCHLORIDE [Suspect]
     Indication: ANXIETY
     Route: 064
     Dates: start: 20110922
  6. DIHYDROCODEINE [Suspect]
     Indication: PAIN
     Route: 064
     Dates: start: 20100315
  7. FLUOXETINE [Suspect]
     Indication: DEPRESSION
     Route: 064
     Dates: start: 20100621, end: 20111004
  8. PROPRANOLOL [Suspect]
     Indication: ANXIETY
     Route: 064
     Dates: start: 20090505
  9. PROPRANOLOL [Suspect]
     Indication: PALPITATIONS
     Route: 064
     Dates: start: 20090505

REACTIONS (7)
  - Maternal drugs affecting foetus [None]
  - Drug withdrawal syndrome neonatal [None]
  - Hypocalcaemia [None]
  - Pneumothorax [None]
  - Premature baby [None]
  - Neonatal respiratory distress syndrome [None]
  - Caesarean section [None]
